FAERS Safety Report 4665097-2 (Version None)
Quarter: 2005Q2

REPORT INFORMATION
  Report Type: 
  Country: None (occurrence: None)
  Receive Date: 20050517
  Receipt Date: 20050426
  Transmission Date: 20051028
  Serious: No
  Sender: FDA-Public Use
  Company Number: JP_050406343

PATIENT
  Age: 67 Year
  Sex: Female

DRUGS (4)
  1. ZYPREXA [Suspect]
     Indication: SCHIZOPHRENIA
     Dosage: 20 MG DAY
     Dates: start: 20040715
  2. ROHYPNOL (FLUNITRAZEPAM EG) [Concomitant]
  3. FUROSEMIDE [Concomitant]
  4. DEPAKENE [Concomitant]

REACTIONS (2)
  - BLOOD PROLACTIN INCREASED [None]
  - VAGINAL HAEMORRHAGE [None]
